FAERS Safety Report 4819830-7 (Version None)
Quarter: 2005Q4

REPORT INFORMATION
  Report Type: 
  Country: None (occurrence: None)
  Receive Date: 20051102
  Receipt Date: 20051025
  Transmission Date: 20060501
  Serious: Yes (Hospitalization, Other)
  Sender: FDA-Public Use
  Company Number: HQWYE235025OCT05

PATIENT
  Age: 89 Year
  Sex: Female

DRUGS (7)
  1. CORDARONE [Suspect]
     Indication: ACUTE MYOCARDIAL INFARCTION
     Dosage: 200 MG 1X PER 1 DAY, ORAL
     Route: 048
     Dates: start: 20030826, end: 20030826
  2. CORDARONE [Suspect]
     Indication: ACUTE MYOCARDIAL INFARCTION
     Dosage: 300 MG 1X PER 1 DAY, INTRAVENOUS
     Route: 042
     Dates: start: 20030826, end: 20030826
  3. HALOPERIDOL [Suspect]
     Indication: AGITATION
     Dosage: 2 MG 1X PER 1 DAY, INTRAVENOUS
     Route: 042
     Dates: start: 20030826, end: 20030826
  4. HALOPERIDOL [Suspect]
     Indication: RESTLESSNESS
     Dosage: 2 MG 1X PER 1 DAY, INTRAVENOUS
     Route: 042
     Dates: start: 20030826, end: 20030826
  5. HALOPERIDOL [Suspect]
     Dosage: 0.5 MG 1X PER 1 DAY, ORAL
     Route: 048
     Dates: start: 20030826, end: 20030826
  6. HALOPERIDOL [Suspect]
     Dosage: 0.5 MG 1X PER 1 DAY, ORAL
     Route: 048
     Dates: start: 20030829, end: 20030901
  7. HALOPERIDOL [Suspect]
     Dosage: 0.5 MG 1X PER 1 DAY, ORAL
     Route: 048
     Dates: start: 20030828

REACTIONS (3)
  - DRUG INTERACTION [None]
  - ELECTROCARDIOGRAM QT CORRECTED INTERVAL PROLONGED [None]
  - ELECTROCARDIOGRAM QT PROLONGED [None]
